FAERS Safety Report 6316490-3 (Version None)
Quarter: 2009Q3

REPORT INFORMATION
  Report Type: 
  Country: None (occurrence: None)
  Receive Date: 20090820
  Receipt Date: 20090812
  Transmission Date: 20100115
  Serious: Yes (Death)
  Sender: FDA-Public Use
  Company Number: CH-BAYER-200928109GPV

PATIENT
  Age: 53 Year
  Sex: Female
  Weight: 58 kg

DRUGS (4)
  1. MIRENA [Suspect]
     Indication: UTERINE POLYP
     Route: 015
     Dates: start: 20090208, end: 20090624
  2. ENCEPUR N [Suspect]
     Indication: IMMUNISATION
     Route: 030
     Dates: start: 20090619
  3. ENGERIX-B [Suspect]
     Indication: HEPATITIS B IMMUNISATION
     Route: 030
     Dates: start: 20090619
  4. ATACAND [Concomitant]
     Indication: HYPERTENSION
     Route: 048

REACTIONS (5)
  - AORTIC DISSECTION [None]
  - BACK PAIN [None]
  - CHEST PAIN [None]
  - SYNCOPE [None]
  - THROMBOCYTOSIS [None]
